FAERS Safety Report 4316604-0 (Version None)
Quarter: 2004Q1

REPORT INFORMATION
  Report Type: 
  Country: None (occurrence: None)
  Receive Date: 20040312
  Receipt Date: 20040312
  Transmission Date: 20041129
  Serious: No
  Sender: FDA-Public Use
  Company Number: None

PATIENT
  Age: 3 Month
  Sex: Female

DRUGS (1)
  1. DIFLUCAN [Suspect]
     Dosage: SUSPENSION

REACTIONS (2)
  - DEHYDRATION [None]
  - MEDICATION ERROR [None]
